FAERS Safety Report 10057327 (Version 1)
Quarter: 2014Q2

REPORT INFORMATION
  Report Type: Report from Study
  Country: DE (occurrence: DE)
  Receive Date: 20140403
  Receipt Date: 20140403
  Transmission Date: 20141212
  Serious: Yes (Hospitalization)
  Sender: FDA-Public Use
  Company Number: DE-ABBVIE-14P-062-1217696-00

PATIENT
  Age: 61 Year
  Sex: Female

DRUGS (1)
  1. HUMIRA [Suspect]
     Indication: RHEUMATOID ARTHRITIS
     Dosage: THERAPY-PAUSE
     Route: 058
     Dates: start: 20121023, end: 20140131

REACTIONS (2)
  - Tendon rupture [Recovering/Resolving]
  - Fall [Recovering/Resolving]
